FAERS Safety Report 9133472 (Version 1)
Quarter: 2013Q1

REPORT INFORMATION
  Report Type: Spontaneous
  Country: CO (occurrence: CO)
  Receive Date: 20130116
  Receipt Date: 20130116
  Transmission Date: 20140127
  Serious: Yes (Hospitalization, Other)
  Sender: FDA-Public Use
  Company Number: CO-AMGEN-COLSP2013002685

PATIENT
  Age: 60 Year
  Sex: Female

DRUGS (9)
  1. ENBREL [Suspect]
     Indication: PSORIATIC ARTHROPATHY
     Dosage: 50 MG, WEEKLY
     Route: 058
     Dates: start: 20121210
  2. ENALAPRIL [Concomitant]
     Indication: HYPERTENSION
     Dosage: 20 MG, 2X/DAY
     Route: 048
     Dates: start: 1998
  3. VERAPAMIL [Concomitant]
     Indication: HYPERTENSION
     Dosage: 80 MG, 2X/DAY
     Route: 048
     Dates: start: 1998, end: 20121218
  4. VERAPAMIL [Concomitant]
     Dosage: 80 MG, 2X/DAY
     Route: 048
     Dates: start: 20121218
  5. HYDROCHLOROTHIAZIDE [Concomitant]
     Indication: HYPERTENSION
     Dosage: 25 MG, 1X/DAY
     Route: 048
     Dates: start: 1998
  6. GLIBENCLAMIDE [Concomitant]
     Indication: DIABETES MELLITUS
     Dosage: UNK
     Route: 048
     Dates: start: 2007
  7. METFORMIN [Concomitant]
     Indication: DIABETES MELLITUS
     Dosage: UNK
     Route: 048
     Dates: start: 2007
  8. METHOTREXATE [Concomitant]
     Indication: ARTHRITIS
     Dosage: 6 TABLETS OF 2.5MG, WEEKLY
     Route: 048
  9. FOLIC ACID [Concomitant]
     Dosage: UNK
     Route: 065
     Dates: start: 201212

REACTIONS (4)
  - Diverticulitis [Recovering/Resolving]
  - Blood pressure increased [Not Recovered/Not Resolved]
  - Pain [Recovering/Resolving]
  - Pyrexia [Recovering/Resolving]
